FAERS Safety Report 7609516-8 (Version None)
Quarter: 2011Q3

REPORT INFORMATION
  Report Type: 
  Country: None (occurrence: None)
  Receive Date: 20110714
  Receipt Date: 20110711
  Transmission Date: 20111222
  Serious: Yes (Death, Hospitalization, Other)
  Sender: FDA-Public Use
  Company Number: PHHY2011GB52893

PATIENT
  Age: 3 Year
  Sex: Male
  Weight: 15.9 kg

DRUGS (7)
  1. BUSULFAN [Suspect]
     Indication: BONE MARROW TRANSPLANT
     Dosage: 16 MG, QID
     Route: 048
     Dates: start: 20110103, end: 20110106
  2. CYCLOPHOSPHAMIDE [Concomitant]
     Indication: BONE MARROW TRANSPLANT
     Dosage: 795 MG, QD
     Route: 042
  3. METHOTREXATE [Suspect]
     Indication: THALASSAEMIA BETA
     Dosage: 6.8 MG, QD
     Dates: start: 20110116, end: 20110116
  4. METHOTREXATE [Suspect]
     Dosage: 6.8 MG, QD
     Dates: start: 20110119, end: 20110119
  5. THIOTEPA [Concomitant]
     Dosage: 10 MG/KG, UNK
     Route: 065
  6. ALEMTUZUMAB [Concomitant]
     Dosage: 0.3 MG/KG, UNK
  7. CYCLOSPORINE [Concomitant]
     Indication: GRAFT VERSUS HOST DISEASE

REACTIONS (3)
  - LUNG CONSOLIDATION [None]
  - CYTOMEGALOVIRUS INFECTION [None]
  - VENOOCCLUSIVE DISEASE [None]
